FAERS Safety Report 18850642 (Version 3)
Quarter: 2021Q2

REPORT INFORMATION
  Report Type: Report from Study
  Country: AR (occurrence: AR)
  Receive Date: 20210204
  Receipt Date: 20210430
  Transmission Date: 20210717
  Serious: Yes (Other)
  Sender: FDA-Public Use
  Company Number: NVSC2020AR251060

PATIENT
  Age: 59 Year
  Sex: Female

DRUGS (5)
  1. KISQALI [Suspect]
     Active Substance: RIBOCICLIB
     Dosage: UNK (3X200 MG)
     Route: 065
  2. KISQALI [Suspect]
     Active Substance: RIBOCICLIB
     Dosage: 400 MG, QD
     Route: 048
     Dates: start: 20200828, end: 20210404
  3. KISQALI [Suspect]
     Active Substance: RIBOCICLIB
     Indication: BREAST CANCER METASTATIC
     Dosage: 600 MG, QD
     Route: 048
     Dates: start: 20200728
  4. KISQALI [Suspect]
     Active Substance: RIBOCICLIB
     Dosage: 600 MG, QD
     Route: 048
     Dates: start: 20200828, end: 20201230
  5. KISQALI [Suspect]
     Active Substance: RIBOCICLIB
     Dosage: UNK (2X200 MG)
     Route: 065

REACTIONS (27)
  - Hypertension [Unknown]
  - Liver disorder [Unknown]
  - Drug intolerance [Unknown]
  - Asthenia [Unknown]
  - Feeling abnormal [Unknown]
  - Movement disorder [Unknown]
  - Headache [Unknown]
  - Malaise [Unknown]
  - Body mass index decreased [Unknown]
  - Stress [Unknown]
  - Burning sensation [Unknown]
  - Electrocardiogram QT prolonged [Recovering/Resolving]
  - Vomiting [Unknown]
  - Pain [Unknown]
  - Drug ineffective [Unknown]
  - Illness [Unknown]
  - Pneumonia [Unknown]
  - Blood pressure increased [Unknown]
  - Dyspnoea [Unknown]
  - Pallor [Unknown]
  - Decreased immune responsiveness [Unknown]
  - Gastric disorder [Unknown]
  - Cardiovascular examination abnormal [Unknown]
  - Nasopharyngitis [Unknown]
  - Lymphadenopathy [Unknown]
  - Discomfort [Unknown]
  - Abdominal pain [Unknown]

NARRATIVE: CASE EVENT DATE: 20200828
